FAERS Safety Report 25373758 (Version 1)
Quarter: 2025Q2

REPORT INFORMATION
  Report Type: Spontaneous
  Country: US (occurrence: US)
  Receive Date: 20250529
  Receipt Date: 20250529
  Transmission Date: 20250716
  Serious: Yes (Other)
  Sender: MYLAN
  Company Number: US-MYLANLABS-2025M1044895

PATIENT
  Age: 63 Year
  Sex: Male

DRUGS (84)
  1. DOXORUBICIN [Suspect]
     Active Substance: DOXORUBICIN
     Indication: Diffuse large B-cell lymphoma stage IV
  2. DOXORUBICIN [Suspect]
     Active Substance: DOXORUBICIN
  3. DOXORUBICIN [Suspect]
     Active Substance: DOXORUBICIN
     Route: 065
  4. DOXORUBICIN [Suspect]
     Active Substance: DOXORUBICIN
     Route: 065
  5. DOXORUBICIN [Suspect]
     Active Substance: DOXORUBICIN
  6. DOXORUBICIN [Suspect]
     Active Substance: DOXORUBICIN
  7. DOXORUBICIN [Suspect]
     Active Substance: DOXORUBICIN
     Route: 065
  8. DOXORUBICIN [Suspect]
     Active Substance: DOXORUBICIN
     Route: 065
  9. PREDNISONE [Suspect]
     Active Substance: PREDNISONE
     Indication: Diffuse large B-cell lymphoma stage IV
  10. PREDNISONE [Suspect]
     Active Substance: PREDNISONE
  11. PREDNISONE [Suspect]
     Active Substance: PREDNISONE
     Route: 065
  12. PREDNISONE [Suspect]
     Active Substance: PREDNISONE
     Route: 065
  13. PREDNISONE [Suspect]
     Active Substance: PREDNISONE
  14. PREDNISONE [Suspect]
     Active Substance: PREDNISONE
  15. PREDNISONE [Suspect]
     Active Substance: PREDNISONE
     Route: 065
  16. PREDNISONE [Suspect]
     Active Substance: PREDNISONE
     Route: 065
  17. ETOPOSIDE [Suspect]
     Active Substance: ETOPOSIDE
     Indication: Diffuse large B-cell lymphoma stage IV
  18. ETOPOSIDE [Suspect]
     Active Substance: ETOPOSIDE
     Route: 065
  19. ETOPOSIDE [Suspect]
     Active Substance: ETOPOSIDE
     Route: 065
  20. ETOPOSIDE [Suspect]
     Active Substance: ETOPOSIDE
  21. METHOTREXATE [Suspect]
     Active Substance: METHOTREXATE
     Indication: Diffuse large B-cell lymphoma stage IV
  22. METHOTREXATE [Suspect]
     Active Substance: METHOTREXATE
     Route: 065
  23. METHOTREXATE [Suspect]
     Active Substance: METHOTREXATE
     Route: 065
  24. METHOTREXATE [Suspect]
     Active Substance: METHOTREXATE
  25. METHOTREXATE [Suspect]
     Active Substance: METHOTREXATE
     Indication: Diffuse large B-cell lymphoma stage IV
  26. METHOTREXATE [Suspect]
     Active Substance: METHOTREXATE
     Route: 065
  27. METHOTREXATE [Suspect]
     Active Substance: METHOTREXATE
     Route: 065
  28. METHOTREXATE [Suspect]
     Active Substance: METHOTREXATE
  29. RITUXIMAB [Suspect]
     Active Substance: RITUXIMAB
     Indication: Diffuse large B-cell lymphoma stage IV
  30. RITUXIMAB [Suspect]
     Active Substance: RITUXIMAB
  31. RITUXIMAB [Suspect]
     Active Substance: RITUXIMAB
     Route: 065
  32. RITUXIMAB [Suspect]
     Active Substance: RITUXIMAB
     Route: 065
  33. RITUXIMAB [Suspect]
     Active Substance: RITUXIMAB
  34. RITUXIMAB [Suspect]
     Active Substance: RITUXIMAB
  35. RITUXIMAB [Suspect]
     Active Substance: RITUXIMAB
     Route: 065
  36. RITUXIMAB [Suspect]
     Active Substance: RITUXIMAB
     Route: 065
  37. RITUXIMAB [Suspect]
     Active Substance: RITUXIMAB
  38. RITUXIMAB [Suspect]
     Active Substance: RITUXIMAB
     Route: 065
  39. RITUXIMAB [Suspect]
     Active Substance: RITUXIMAB
  40. RITUXIMAB [Suspect]
     Active Substance: RITUXIMAB
     Route: 065
  41. CYCLOPHOSPHAMIDE [Suspect]
     Active Substance: CYCLOPHOSPHAMIDE
     Indication: Diffuse large B-cell lymphoma stage IV
  42. CYCLOPHOSPHAMIDE [Suspect]
     Active Substance: CYCLOPHOSPHAMIDE
  43. CYCLOPHOSPHAMIDE [Suspect]
     Active Substance: CYCLOPHOSPHAMIDE
     Route: 065
  44. CYCLOPHOSPHAMIDE [Suspect]
     Active Substance: CYCLOPHOSPHAMIDE
     Route: 065
  45. CYCLOPHOSPHAMIDE [Suspect]
     Active Substance: CYCLOPHOSPHAMIDE
  46. CYCLOPHOSPHAMIDE [Suspect]
     Active Substance: CYCLOPHOSPHAMIDE
  47. CYCLOPHOSPHAMIDE [Suspect]
     Active Substance: CYCLOPHOSPHAMIDE
     Route: 065
  48. CYCLOPHOSPHAMIDE [Suspect]
     Active Substance: CYCLOPHOSPHAMIDE
     Route: 065
  49. VINCRISTINE [Suspect]
     Active Substance: VINCRISTINE
     Indication: Diffuse large B-cell lymphoma stage IV
  50. VINCRISTINE [Suspect]
     Active Substance: VINCRISTINE
  51. VINCRISTINE [Suspect]
     Active Substance: VINCRISTINE
     Route: 065
  52. VINCRISTINE [Suspect]
     Active Substance: VINCRISTINE
     Route: 065
  53. VINCRISTINE [Suspect]
     Active Substance: VINCRISTINE
  54. VINCRISTINE [Suspect]
     Active Substance: VINCRISTINE
  55. VINCRISTINE [Suspect]
     Active Substance: VINCRISTINE
     Route: 065
  56. VINCRISTINE [Suspect]
     Active Substance: VINCRISTINE
     Route: 065
  57. CYTARABINE [Suspect]
     Active Substance: CYTARABINE
     Indication: Diffuse large B-cell lymphoma stage IV
  58. CYTARABINE [Suspect]
     Active Substance: CYTARABINE
     Route: 065
  59. CYTARABINE [Suspect]
     Active Substance: CYTARABINE
     Route: 065
  60. CYTARABINE [Suspect]
     Active Substance: CYTARABINE
  61. AXICABTAGENE CILOLEUCEL [Suspect]
     Active Substance: AXICABTAGENE CILOLEUCEL
     Indication: Diffuse large B-cell lymphoma stage IV
  62. AXICABTAGENE CILOLEUCEL [Suspect]
     Active Substance: AXICABTAGENE CILOLEUCEL
     Route: 065
  63. AXICABTAGENE CILOLEUCEL [Suspect]
     Active Substance: AXICABTAGENE CILOLEUCEL
     Route: 065
  64. AXICABTAGENE CILOLEUCEL [Suspect]
     Active Substance: AXICABTAGENE CILOLEUCEL
  65. GLOFITAMAB [Suspect]
     Active Substance: GLOFITAMAB
     Indication: Diffuse large B-cell lymphoma stage IV
  66. GLOFITAMAB [Suspect]
     Active Substance: GLOFITAMAB
     Route: 065
  67. GLOFITAMAB [Suspect]
     Active Substance: GLOFITAMAB
     Route: 065
  68. GLOFITAMAB [Suspect]
     Active Substance: GLOFITAMAB
  69. OBINUTUZUMAB [Suspect]
     Active Substance: OBINUTUZUMAB
     Indication: Diffuse large B-cell lymphoma stage IV
  70. OBINUTUZUMAB [Suspect]
     Active Substance: OBINUTUZUMAB
     Route: 065
  71. OBINUTUZUMAB [Suspect]
     Active Substance: OBINUTUZUMAB
     Route: 065
  72. OBINUTUZUMAB [Suspect]
     Active Substance: OBINUTUZUMAB
  73. ACALABRUTINIB [Suspect]
     Active Substance: ACALABRUTINIB
     Indication: Diffuse large B-cell lymphoma stage IV
  74. ACALABRUTINIB [Suspect]
     Active Substance: ACALABRUTINIB
     Route: 065
  75. ACALABRUTINIB [Suspect]
     Active Substance: ACALABRUTINIB
     Route: 065
  76. ACALABRUTINIB [Suspect]
     Active Substance: ACALABRUTINIB
  77. REMDESIVIR [Concomitant]
     Active Substance: REMDESIVIR
     Indication: COVID-19
  78. REMDESIVIR [Concomitant]
     Active Substance: REMDESIVIR
     Route: 065
  79. REMDESIVIR [Concomitant]
     Active Substance: REMDESIVIR
     Route: 065
  80. REMDESIVIR [Concomitant]
     Active Substance: REMDESIVIR
  81. BICTEGRAVIR SODIUM\EMTRICITABINE\TENOFOVIR ALAFENAMIDE FUMARATE [Concomitant]
     Active Substance: BICTEGRAVIR SODIUM\EMTRICITABINE\TENOFOVIR ALAFENAMIDE FUMARATE
     Indication: HIV infection
  82. BICTEGRAVIR SODIUM\EMTRICITABINE\TENOFOVIR ALAFENAMIDE FUMARATE [Concomitant]
     Active Substance: BICTEGRAVIR SODIUM\EMTRICITABINE\TENOFOVIR ALAFENAMIDE FUMARATE
     Route: 065
  83. BICTEGRAVIR SODIUM\EMTRICITABINE\TENOFOVIR ALAFENAMIDE FUMARATE [Concomitant]
     Active Substance: BICTEGRAVIR SODIUM\EMTRICITABINE\TENOFOVIR ALAFENAMIDE FUMARATE
     Route: 065
  84. BICTEGRAVIR SODIUM\EMTRICITABINE\TENOFOVIR ALAFENAMIDE FUMARATE [Concomitant]
     Active Substance: BICTEGRAVIR SODIUM\EMTRICITABINE\TENOFOVIR ALAFENAMIDE FUMARATE

REACTIONS (1)
  - Drug ineffective [Unknown]
